FAERS Safety Report 9683772 (Version 1)
Quarter: 2013Q4

REPORT INFORMATION
  Report Type: Spontaneous
  Country: ES (occurrence: ES)
  Receive Date: 20131112
  Receipt Date: 20131112
  Transmission Date: 20140711
  Serious: Yes (Hospitalization, Other)
  Sender: FDA-Public Use
  Company Number: ES-B.I. PHARMACEUTICALS,INC./RIDGEFIELD-2013-BI-35952GD

PATIENT
  Age: 39 Year
  Sex: Male

DRUGS (3)
  1. VIRAMUNE [Suspect]
     Indication: HIV INFECTION
  2. EMTRICITABINE [Suspect]
     Indication: HIV INFECTION
  3. TENOFOVIR [Suspect]
     Indication: HIV INFECTION

REACTIONS (6)
  - Sympathetic ophthalmia [Unknown]
  - Blindness [Unknown]
  - Atrophy of globe [Unknown]
  - Vitritis [Unknown]
  - Retinal haemorrhage [Unknown]
  - Eye inflammation [Unknown]
